FAERS Safety Report 23741268 (Version 2)
Quarter: 2024Q2

REPORT INFORMATION
  Report Type: Spontaneous
  Country: US (occurrence: US)
  Receive Date: 20240415
  Receipt Date: 20240620
  Transmission Date: 20240716
  Serious: Yes (Hospitalization)
  Sender: FDA-Public Use
  Company Number: US-ABBVIE-5717551

PATIENT
  Age: 27 Year
  Sex: Male

DRUGS (10)
  1. RINVOQ [Suspect]
     Active Substance: UPADACITINIB
     Indication: Dermatitis atopic
     Route: 048
     Dates: start: 202309, end: 20240326
  2. MUPIROCIN [Concomitant]
     Active Substance: MUPIROCIN
     Indication: Product used for unknown indication
     Route: 061
  3. DOXYCYCLINE HYCLATE [Concomitant]
     Active Substance: DOXYCYCLINE HYCLATE
     Indication: Product used for unknown indication
     Route: 048
  4. TRIAMCINOLONE ACETONIDE [Concomitant]
     Active Substance: TRIAMCINOLONE ACETONIDE
     Indication: Product used for unknown indication
     Dosage: 0.1%?FOR TWO WEEKS
     Route: 061
  5. DUPIXENT [Concomitant]
     Active Substance: DUPILUMAB
     Indication: Product used for unknown indication
  6. ELIMITE [Concomitant]
     Active Substance: PERMETHRIN
     Indication: Product used for unknown indication
     Dosage: LEAVE ON FOR 8-12 HOURS?BEFORE WASHING OFF
     Route: 061
     Dates: start: 20240326
  7. DIPROLENE [Concomitant]
     Active Substance: BETAMETHASONE DIPROPIONATE
     Indication: Product used for unknown indication
     Dosage: 0.05 %?APPLY TOPICALLY DAILY.
     Route: 061
     Dates: start: 20220216
  8. ONDANSETRON [Concomitant]
     Active Substance: ONDANSETRON
     Indication: Product used for unknown indication
  9. POLYETHYLENE GLYCOL [Concomitant]
     Active Substance: POLYETHYLENE GLYCOL
     Indication: Product used for unknown indication
  10. ACETAMINOPHEN [Concomitant]
     Active Substance: ACETAMINOPHEN
     Indication: Product used for unknown indication

REACTIONS (19)
  - Eczema herpeticum [Recovered/Resolved]
  - Rash vesicular [Unknown]
  - Rash [Unknown]
  - Pyrexia [Recovered/Resolved]
  - Neck pain [Unknown]
  - Tinea infection [Unknown]
  - Oropharyngeal pain [Unknown]
  - Fatigue [Unknown]
  - Skin discharge [Unknown]
  - Pigmentation disorder [Unknown]
  - Disease progression [Unknown]
  - Chills [Unknown]
  - Pain in extremity [Unknown]
  - Pyrexia [Unknown]
  - Skin lesion [Unknown]
  - Skin infection [Unknown]
  - Rash vesicular [Unknown]
  - Skin burning sensation [Unknown]
  - Rash papular [Unknown]

NARRATIVE: CASE EVENT DATE: 20240305
